FAERS Safety Report 9160306 (Version 4)
Quarter: 2013Q1

REPORT INFORMATION
  Report Type: Spontaneous
  Country: GB (occurrence: None)
  Receive Date: 20130219
  Receipt Date: 20130322
  Transmission Date: 20140127
  Serious: Yes (Other)
  Sender: FDA-Public Use
  Company Number: AUR-APL-2013-01400

PATIENT
  Sex: Female

DRUGS (1)
  1. LAMOTRIGINE [Suspect]
     Indication: PRODUCT USED FOR UNKNOWN INDICATION

REACTIONS (8)
  - Vision blurred [None]
  - Fall [None]
  - Gait disturbance [None]
  - Joint injury [None]
  - Incorrect dose administered [None]
  - Drug dispensing error [None]
  - Overdose [None]
  - Anxiety [None]
